FAERS Safety Report 13215987 (Version 1)
Quarter: 2017Q1

REPORT INFORMATION
  Report Type: Spontaneous
  Country: US (occurrence: US)
  Receive Date: 20170210
  Receipt Date: 20170210
  Transmission Date: 20170428
  Serious: No
  Sender: FDA-Public Use
  Company Number: US-ROCHE-1820500

PATIENT
  Age: 27 Year
  Sex: Male

DRUGS (5)
  1. RISPERDAL [Concomitant]
     Active Substance: RISPERIDONE
     Indication: CEREBRAL PALSY
     Route: 048
  2. BENZTROPINE [Concomitant]
     Active Substance: BENZTROPINE
     Indication: CEREBRAL PALSY
  3. XOLAIR [Suspect]
     Active Substance: OMALIZUMAB
     Indication: URTICARIA
     Route: 065
  4. CEFPROZIL. [Concomitant]
     Active Substance: CEFPROZIL
     Indication: URTICARIA
  5. TOPAMAX [Concomitant]
     Active Substance: TOPIRAMATE
     Indication: CEREBRAL PALSY

REACTIONS (2)
  - Rash [Unknown]
  - Skin lesion [Unknown]

NARRATIVE: CASE EVENT DATE: 20160816
